FAERS Safety Report 4664081-2 (Version None)
Quarter: 2005Q2

REPORT INFORMATION
  Report Type: 
  Country: None (occurrence: None)
  Receive Date: 20050516
  Receipt Date: 20050505
  Transmission Date: 20051028
  Serious: Yes (Hospitalization, Disabling, Other)
  Sender: FDA-Public Use
  Company Number: 2004-10-1012

PATIENT
  Age: 53 Year
  Sex: Female
  Weight: 122.4712 kg

DRUGS (11)
  1. CLARITIN [Suspect]
     Indication: HYPERSENSITIVITY
     Dosage: ORAL
     Route: 048
     Dates: start: 20020101, end: 20020701
  2. CLARITIN REDITABS [Suspect]
     Indication: DRUG USE FOR UNKNOWN INDICATION
     Dosage: ORAL
     Route: 048
     Dates: start: 20020101, end: 20020701
  3. NEURONTIN [Concomitant]
  4. CELEBREXA (CELECOXIB) [Concomitant]
  5. COUMADIN [Concomitant]
  6. GLUCOPHAGE [Concomitant]
  7. PRILOSEC [Concomitant]
  8. SYNTHROID [Concomitant]
  9. LIPITOR [Concomitant]
  10. COZAAR [Concomitant]
  11. LASIX [Concomitant]

REACTIONS (6)
  - ANXIETY [None]
  - CHOLECYSTECTOMY [None]
  - DIABETES MELLITUS [None]
  - HEPATITIS C [None]
  - HEPATOTOXICITY [None]
  - PAIN [None]
